FAERS Safety Report 5567140-5 (Version None)
Quarter: 2007Q4

REPORT INFORMATION
  Report Type: 
  Country: None (occurrence: None)
  Receive Date: 20071130
  Receipt Date: 20070806
  Transmission Date: 20080405
  Serious: No
  Sender: FDA-Public Use
  Company Number: US200708002451

PATIENT
  Age: 61 Year
  Sex: Female

DRUGS (15)
  1. BYETTA [Suspect]
     Indication: TYPE 2 DIABETES MELLITUS
     Dosage: 5 UG, 2/D, SUBCUTANEOUS, 10 UG, 2/D, SUBCUTANEOUS
     Route: 058
     Dates: start: 20070101, end: 20070201
  2. BYETTA [Suspect]
     Indication: TYPE 2 DIABETES MELLITUS
     Dosage: 5 UG, 2/D, SUBCUTANEOUS, 10 UG, 2/D, SUBCUTANEOUS
     Route: 058
     Dates: start: 20070201
  3. EXENATIDE 5MCG PEN, DISPOSABLE DEVICE (EXENATIDE PEN (5MCG)) PEN,DISPO [Concomitant]
  4. EXENATIDE 10MCG PEN, DISPOSABLE DEVICE (EXENATIDE PEN (10MCG)) PEN,DIS [Concomitant]
  5. METFORMIN HCL (METFORMIN HYDROCHLORIDE) [Concomitant]
  6. DIOVAN HCT [Concomitant]
  7. METOPROLOL TARTRATE [Concomitant]
  8. LIPITOR [Concomitant]
  9. PREMARIN [Concomitant]
  10. ASPIRIN [Concomitant]
  11. SINGULAIR [Concomitant]
  12. TRAVATAN [Concomitant]
  13. COMBIVENT (IPRATROPIUM BROMIDE, SALBUTAMOL) [Concomitant]
  14. ASMANEX TWISTHALER [Concomitant]
  15. ASTELIN [Concomitant]

REACTIONS (5)
  - BRONCHITIS [None]
  - COUGH [None]
  - NASOPHARYNGITIS [None]
  - PULMONARY CONGESTION [None]
  - PYREXIA [None]
